FAERS Safety Report 10044567 (Version 1)
Quarter: 2014Q1

REPORT INFORMATION
  Report Type: Spontaneous
  Country: FR (occurrence: FR)
  Receive Date: 20140328
  Receipt Date: 20140328
  Transmission Date: 20141002
  Serious: Yes (Hospitalization, Other)
  Sender: FDA-Public Use
  Company Number: FR-PFIZER INC-2014087837

PATIENT
  Age: 84 Year
  Sex: Male

DRUGS (12)
  1. CORDARONE [Suspect]
     Indication: ATRIAL FIBRILLATION
     Dosage: 200 MG, DAILY
     Route: 048
     Dates: end: 201401
  2. PRADAXA [Interacting]
     Indication: ATRIAL FIBRILLATION
     Dosage: 110 MG, DAILY
     Route: 048
     Dates: end: 201401
  3. CLARITHROMYCIN [Concomitant]
     Dosage: UNK
  4. MODURETIC [Concomitant]
     Dosage: UNK
  5. ALPRESS [Concomitant]
     Dosage: UNK
  6. ATARAX [Concomitant]
     Dosage: UNK
  7. MONO-TILDIEM [Concomitant]
     Dosage: UNK
  8. DIFFU K [Concomitant]
     Dosage: UNK
  9. INIPOMP [Concomitant]
     Dosage: UNK
  10. SPIRIVA [Concomitant]
     Dosage: UNK
  11. BRICANYL TURBUHALER [Concomitant]
     Dosage: UNK
  12. VENTOLINE [Concomitant]
     Dosage: UNK

REACTIONS (5)
  - Drug interaction [Unknown]
  - Haemothorax [Not Recovered/Not Resolved]
  - Pseudomonas test positive [Unknown]
  - Anaemia [Unknown]
  - Oedema peripheral [Unknown]
